FAERS Safety Report 4861019-X (Version None)
Quarter: 2005Q4

REPORT INFORMATION
  Report Type: 
  Country: None (occurrence: None)
  Receive Date: 20051216
  Receipt Date: 20051208
  Transmission Date: 20060501
  Serious: Yes (Other)
  Sender: FDA-Public Use
  Company Number: DE200512001458

PATIENT
  Age: 59 Year
  Sex: Female
  Weight: 60 kg

DRUGS (4)
  1. CYMBALTA [Suspect]
     Indication: DRUG USE FOR UNKNOWN INDICATION
  2. ARAVA                      /UNK/(LEFLUNOMIDE) [Concomitant]
  3. BISOPROLOL FUMARATE [Concomitant]
  4. RAMIPRIL [Concomitant]

REACTIONS (4)
  - BRADYCARDIA [None]
  - COMA [None]
  - HYPOTENSION [None]
  - SUICIDAL IDEATION [None]
